FAERS Safety Report 8348242-7 (Version None)
Quarter: 2012Q2

REPORT INFORMATION
  Report Type: 
  Country: None (occurrence: None)
  Receive Date: 20120507
  Receipt Date: 20120423
  Transmission Date: 20120825
  Serious: Yes (Death, Other)
  Sender: FDA-Public Use
  Company Number: 2012MA005431

PATIENT
  Age: 16 Year
  Sex: Male

DRUGS (3)
  1. HYDROCORTISONE 1% OINTMENT [Suspect]
     Indication: T-CELL TYPE ACUTE LEUKAEMIA
     Dosage: INTH
     Route: 037
  2. METHOTREXATE [Suspect]
     Indication: T-CELL TYPE ACUTE LEUKAEMIA
     Dosage: INTH
     Route: 037
  3. CYTARABINE [Suspect]
     Indication: T-CELL TYPE ACUTE LEUKAEMIA
     Dosage: INTH
     Route: 037

REACTIONS (5)
  - NERVOUS SYSTEM DISORDER [None]
  - OPTIC NERVE DISORDER [None]
  - ACUTE LYMPHOCYTIC LEUKAEMIA RECURRENT [None]
  - VISUAL ACUITY REDUCED [None]
  - LEUKAEMIC INFILTRATION [None]
